FAERS Safety Report 8030019-3 (Version None)
Quarter: 2012Q1

REPORT INFORMATION
  Report Type: 
  Country: None (occurrence: None)
  Receive Date: 20120109
  Receipt Date: 20120105
  Transmission Date: 20120608
  Serious: No
  Sender: FDA-Public Use
  Company Number: US-B.I. PHARMACEUTICALS,INC./RIDGEFIELD-2011-BP-27721BP

PATIENT
  Sex: Male

DRUGS (16)
  1. PLAVIX [Concomitant]
     Indication: PROPHYLAXIS
     Dosage: 75 MG
     Route: 048
     Dates: start: 20110601
  2. MULTI-VITAMINS [Concomitant]
     Indication: SUPPLEMENTATION THERAPY
  3. IMDUR [Concomitant]
     Indication: CORONARY ARTERY DISEASE
     Dosage: 75 MG
     Route: 048
     Dates: start: 20110901
  4. SIMVASTATIN [Concomitant]
     Indication: BLOOD CHOLESTEROL INCREASED
     Dosage: 10 MG
     Route: 048
  5. ASPIRIN [Concomitant]
     Indication: PROPHYLAXIS
     Dosage: 81 MG
     Route: 048
     Dates: start: 20111101
  6. VITAMIN C [Concomitant]
     Indication: SUPPLEMENTATION THERAPY
  7. PLAVIX [Concomitant]
     Indication: ANTICOAGULANT THERAPY
  8. TOPROL-XL [Concomitant]
     Indication: BLOOD PRESSURE
  9. TOPROL-XL [Concomitant]
     Indication: ATRIAL FIBRILLATION
     Dosage: 50 MG
     Route: 048
  10. VITAMIN E [Concomitant]
     Indication: SUPPLEMENTATION THERAPY
  11. VITAMIN C [Concomitant]
     Indication: PROPHYLAXIS
     Dosage: 500 U
     Route: 048
     Dates: start: 20020101
  12. PRADAXA [Suspect]
     Indication: ATRIAL FIBRILLATION
     Dosage: 300 MG
     Route: 048
     Dates: start: 20110626
  13. 70/30 NPH INSULIN [Concomitant]
     Indication: TYPE 2 DIABETES MELLITUS
     Dosage: 44 U
     Route: 058
  14. RAMIPRIL [Concomitant]
     Indication: HYPERTENSION
     Dosage: 10 MG
     Route: 048
     Dates: start: 20020101
  15. MULTI-VITAMINS [Concomitant]
     Indication: PROPHYLAXIS
     Route: 048
     Dates: start: 20020101
  16. VITAMIN E [Concomitant]
     Indication: PROPHYLAXIS
     Dosage: 400 U
     Route: 048
     Dates: start: 20020101

REACTIONS (7)
  - VERTIGO [None]
  - HAEMOPTYSIS [None]
  - GINGIVAL BLEEDING [None]
  - MOUTH HAEMORRHAGE [None]
  - NASAL CONGESTION [None]
  - EPISTAXIS [None]
  - DYSPEPSIA [None]
